FAERS Safety Report 25555479 (Version 1)
Quarter: 2025Q3

REPORT INFORMATION
  Report Type: Spontaneous
  Country: US (occurrence: US)
  Receive Date: 20250715
  Receipt Date: 20250715
  Transmission Date: 20251020
  Serious: No
  Sender: NOVO NORDISK
  Company Number: US-NOVOPROD-1240699

PATIENT
  Sex: Female
  Weight: 94.785 kg

DRUGS (1)
  1. OZEMPIC [Suspect]
     Active Substance: SEMAGLUTIDE
     Indication: Glucose tolerance impaired
     Dosage: UNK, QW (INJECTION EVERY FRIDAY)
     Route: 058
     Dates: start: 202306, end: 202309

REACTIONS (4)
  - Weight increased [Recovering/Resolving]
  - Weight fluctuation [Recovering/Resolving]
  - Glycosylated haemoglobin increased [Unknown]
  - Product use in unapproved indication [Unknown]
